FAERS Safety Report 8872998 (Version 2)
Quarter: 2012Q4

REPORT INFORMATION
  Report Type: 
  Country: JP (occurrence: JP)
  Receive Date: 20121029
  Receipt Date: 20121128
  Transmission Date: 20130627
  Serious: Yes (Hospitalization)
  Sender: FDA-Public Use
  Company Number: JP-B.I. PHARMACEUTICALS,INC./RIDGEFIELD-2012-BP-26501NB

PATIENT
  Age: 96 Year
  Sex: Female
  Weight: 32.7 kg

DRUGS (8)
  1. PRAZAXA [Suspect]
     Indication: ATRIAL FIBRILLATION
     Dosage: 220 mg
     Route: 048
     Dates: start: 20120509, end: 20121025
  2. EXFORGE [Concomitant]
     Indication: HYPERTENSION
     Route: 048
  3. BAYASPIRIN [Concomitant]
     Dosage: 100 mg
     Route: 048
  4. TAKEPRON [Concomitant]
     Dosage: 15 mg
     Route: 048
  5. PAXIL [Concomitant]
     Dosage: 10 mg
     Route: 048
  6. MAGLAX [Concomitant]
     Dosage: 1500 mg
     Route: 048
  7. AMBROXOL HYDROCHLORIDE [Concomitant]
     Dosage: 45 mg
     Route: 048
  8. REMINYL [Concomitant]
     Dosage: 16 mg
     Route: 048

REACTIONS (3)
  - Cardiac failure [Not Recovered/Not Resolved]
  - Pneumonia [Recovered/Resolved]
  - Renal impairment [Not Recovered/Not Resolved]
